FAERS Safety Report 6081893-1 (Version None)
Quarter: 2009Q1

REPORT INFORMATION
  Report Type: 
  Country: None (occurrence: None)
  Receive Date: 20090218
  Receipt Date: 20080520
  Transmission Date: 20090719
  Serious: No
  Sender: FDA-Public Use
  Company Number: US-BRISTOL-MYERS SQUIBB COMPANY-14198170

PATIENT

DRUGS (1)
  1. METFORMIN HCL [Suspect]

REACTIONS (2)
  - DYSPNOEA [None]
  - NAUSEA [None]
